FAERS Safety Report 12707016 (Version 7)
Quarter: 2016Q4

REPORT INFORMATION
  Report Type: Report from Study
  Country: MX (occurrence: MX)
  Receive Date: 20160901
  Receipt Date: 20161208
  Transmission Date: 20170207
  Serious: Yes (Life-Threatening, Other)
  Sender: FDA-Public Use
  Company Number: PHHY2016MX019003

PATIENT
  Age: 54 Year
  Sex: Male
  Weight: 86 kg

DRUGS (8)
  1. TEGRETOL [Suspect]
     Active Substance: CARBAMAZEPINE
     Indication: ANEURYSM
     Dosage: 4 DF (200 MG), QD (TWO DAILY DOSES OF TWO TABLETS)
     Route: 065
  2. JANUVIA [Concomitant]
     Active Substance: SITAGLIPTIN PHOSPHATE
     Indication: DIABETES MELLITUS
     Dosage: 1 OT, QD
     Route: 065
  3. TEGRETOL [Suspect]
     Active Substance: CARBAMAZEPINE
     Indication: HEADACHE
     Dosage: 4 DF, QD (200 MG)
     Route: 065
  4. TYLENOL [Concomitant]
     Active Substance: ACETAMINOPHEN
     Indication: PRODUCT USED FOR UNKNOWN INDICATION
     Route: 065
  5. TEGRETOL [Suspect]
     Active Substance: CARBAMAZEPINE
     Dosage: 4 DF (400 MG), QD
     Route: 048
  6. ALMETEC//OLMESARTAN MEDOXOMIL [Concomitant]
     Indication: BLOOD PRESSURE ABNORMAL
     Dosage: 1 OT, QD (SINCE MORE THAN 5 YEARS AGO)
     Route: 065
  7. TEGRETOL [Suspect]
     Active Substance: CARBAMAZEPINE
     Indication: TRIGEMINAL NEURALGIA
     Dosage: 3 OT, UNK
     Route: 065
  8. TEGRETOL [Suspect]
     Active Substance: CARBAMAZEPINE
     Dosage: 4 DF, QD (200 MG) 2 IN THE MORNING AND 2 AT NIGHT
     Route: 048
     Dates: start: 201501

REACTIONS (51)
  - Muscular weakness [Unknown]
  - Malaise [Unknown]
  - Excessive eye blinking [Unknown]
  - Middle insomnia [Unknown]
  - Heart rate increased [Unknown]
  - Chikungunya virus infection [Recovered/Resolved]
  - Asthenia [Unknown]
  - Weight increased [Unknown]
  - Dysphonia [Unknown]
  - Gait disturbance [Unknown]
  - Movement disorder [Unknown]
  - Chest pain [Unknown]
  - Spinal pain [Unknown]
  - Tonsillitis [Unknown]
  - Face injury [Unknown]
  - Eating disorder [Unknown]
  - Tic [Unknown]
  - Drug ineffective [Unknown]
  - Joint instability [Recovering/Resolving]
  - Obstructive airways disorder [Unknown]
  - Fall [Unknown]
  - Chillblains [Unknown]
  - Pneumonia [Unknown]
  - Dyspnoea [Unknown]
  - Oropharyngeal pain [Unknown]
  - Dysstasia [Unknown]
  - Pyrexia [Unknown]
  - Disturbance in attention [Unknown]
  - Pain in extremity [Unknown]
  - Throat irritation [Recovered/Resolved]
  - Trigeminal neuralgia [Unknown]
  - Pain [Unknown]
  - Nausea [Unknown]
  - Diarrhoea [Not Recovered/Not Resolved]
  - Arthralgia [Unknown]
  - Skin exfoliation [Not Recovered/Not Resolved]
  - Nasal congestion [Recovered/Resolved]
  - Limb discomfort [Unknown]
  - Depressed mood [Unknown]
  - Anxiety [Unknown]
  - Dyspnoea [Recovered/Resolved]
  - Product use issue [Not Recovered/Not Resolved]
  - Abasia [Not Recovered/Not Resolved]
  - Influenza [Unknown]
  - Pharyngitis [Recovered/Resolved]
  - Fear [Unknown]
  - Vomiting [Unknown]
  - Memory impairment [Unknown]
  - Insomnia [Unknown]
  - Cough [Unknown]
  - Exostosis [Unknown]

NARRATIVE: CASE EVENT DATE: 2015
